FAERS Safety Report 4337215-7 (Version None)
Quarter: 2004Q2

REPORT INFORMATION
  Report Type: 
  Country: None (occurrence: None)
  Receive Date: 20040401
  Receipt Date: 20031211
  Transmission Date: 20050107
  Serious: Yes (Hospitalization, Other)
  Sender: FDA-Public Use
  Company Number: PHEH2003US11408

PATIENT
  Age: 51 Year
  Sex: Female

DRUGS (1)
  1. VIVELLE-DOT [Suspect]
     Indication: HORMONE REPLACEMENT THERAPY
     Dosage: 0.05 MG, TWICE WEEKLY, TRANSDERMAL
     Route: 062
     Dates: start: 19950101, end: 20031115

REACTIONS (1)
  - THROMBOPHLEBITIS SUPERFICIAL [None]
